FAERS Safety Report 5670452-8 (Version None)
Quarter: 2008Q1

REPORT INFORMATION
  Report Type: 
  Country: None (occurrence: None)
  Receive Date: 20080318
  Receipt Date: 20080310
  Transmission Date: 20080703
  Serious: Yes (Hospitalization)
  Sender: FDA-Public Use
  Company Number: CH-BRISTOL-MYERS SQUIBB COMPANY-14118079

PATIENT
  Age: 79 Year
  Sex: Female

DRUGS (5)
  1. ERBITUX [Suspect]
     Indication: COLON CANCER
     Dosage: EVERY 2 WEEKS CYCLICAL
     Route: 041
     Dates: start: 20070424, end: 20080118
  2. ZANTAC [Suspect]
     Indication: COLON CANCER
     Route: 048
     Dates: start: 20070424, end: 20080118
  3. OMED [Suspect]
     Route: 048
  4. OLMESARTAN MEDOXOMIL [Concomitant]
     Route: 048
  5. TAVEGYL [Concomitant]
     Route: 040
     Dates: end: 20080118

REACTIONS (1)
  - LEUKOCYTOCLASTIC VASCULITIS [None]
